FAERS Safety Report 7346932-6 (Version None)
Quarter: 2011Q1

REPORT INFORMATION
  Report Type: 
  Country: None (occurrence: None)
  Receive Date: 20110311
  Receipt Date: 20110304
  Transmission Date: 20110831
  Serious: Yes (Hospitalization, Other)
  Sender: FDA-Public Use
  Company Number: US-JNJFOC-20101208677

PATIENT
  Sex: Female
  Weight: 55.79 kg

DRUGS (2)
  1. LEVAQUIN [Suspect]
     Indication: PNEUMONIA PRIMARY ATYPICAL
     Route: 048
  2. METHYLPREDNISOLONE [Suspect]
     Indication: TENDONITIS
     Route: 048

REACTIONS (2)
  - TENDON RUPTURE [None]
  - MUSCULOSKELETAL STIFFNESS [None]
